FAERS Safety Report 10260121 (Version 1)
Quarter: 2014Q2

REPORT INFORMATION
  Report Type: Spontaneous
  Country: IT (occurrence: IT)
  Receive Date: 20140625
  Receipt Date: 20140625
  Transmission Date: 20141212
  Serious: Yes (Other)
  Sender: FDA-Public Use
  Company Number: IT-WATSON-2014-14120

PATIENT
  Age: 11 Year
  Sex: Female

DRUGS (1)
  1. TRELSTAR (UNKNOWN) [Suspect]
     Indication: PRECOCIOUS PUBERTY
     Dosage: 3.75 MG, EVERY 4 WEEKS
     Route: 065

REACTIONS (1)
  - Hypertension [Recovered/Resolved]
